FAERS Safety Report 12086641 (Version 1)
Quarter: 2016Q1

REPORT INFORMATION
  Report Type: Spontaneous
  Country: US (occurrence: US)
  Receive Date: 20160217
  Receipt Date: 20160217
  Transmission Date: 20160526
  Serious: No
  Sender: FDA-Public Use
  Company Number: US-ALLERGAN-1503241US

PATIENT
  Age: 55 Year
  Sex: Male
  Weight: 88.44 kg

DRUGS (2)
  1. ASPIRIN. [Concomitant]
     Active Substance: ASPIRIN
     Dosage: 81 MG, UNK
  2. RESTASIS [Suspect]
     Active Substance: CYCLOSPORINE
     Indication: DRY EYE
     Dosage: 2 GTT, BID
     Route: 047
     Dates: start: 201412

REACTIONS (6)
  - Blepharitis [Not Recovered/Not Resolved]
  - Inappropriate schedule of drug administration [Unknown]
  - Periorbital oedema [Not Recovered/Not Resolved]
  - Feeling abnormal [Unknown]
  - Eyelid irritation [Unknown]
  - Eye irritation [Unknown]
